FAERS Safety Report 9203603 (Version 3)
Quarter: 2013Q2

REPORT INFORMATION
  Report Type: Spontaneous
  Country: AT (occurrence: AT)
  Receive Date: 20130402
  Receipt Date: 20130607
  Transmission Date: 20140414
  Serious: Yes (Other)
  Sender: FDA-Public Use
  Company Number: PHHY2013AT031395

PATIENT
  Sex: Female

DRUGS (3)
  1. AFINITOR [Suspect]
     Indication: BREAST CANCER
     Dosage: 10 MG, DAILY
     Route: 048
  2. AFINITOR [Interacting]
     Dosage: 5 MG DAILY
     Route: 048
  3. AROMASIN [Interacting]
     Indication: BREAST CANCER

REACTIONS (14)
  - Lung disorder [Unknown]
  - Asthma [Unknown]
  - Pulmonary oedema [Unknown]
  - Spinal pain [Unknown]
  - Bronchial disorder [Unknown]
  - Chest pain [Unknown]
  - Blood glucose increased [Unknown]
  - Rash [Recovered/Resolved]
  - Feeling abnormal [Unknown]
  - Dyspnoea [Unknown]
  - Burning sensation [Unknown]
  - Bronchial secretion retention [Unknown]
  - Dysstasia [Unknown]
  - Movement disorder [Unknown]
